FAERS Safety Report 5247935-8 (Version None)
Quarter: 2007Q1

REPORT INFORMATION
  Report Type: 
  Country: None (occurrence: None)
  Receive Date: 20070220
  Receipt Date: 20070206
  Transmission Date: 20070707
  Serious: Yes (Hospitalization)
  Sender: FDA-Public Use
  Company Number: CERZ-11513

PATIENT
  Age: 72 Year
  Sex: Female
  Weight: 83.2 kg

DRUGS (5)
  1. CEREZYME [Suspect]
     Indication: GAUCHER'S DISEASE
     Dosage: 2000 UNITS Q2WKS IV
     Route: 042
     Dates: start: 19970301
  2. LASIX [Concomitant]
  3. POTASSIUM ACETATE [Concomitant]
  4. UNSPECIFIED ANITHYPERTENSIVE MEDICATION [Concomitant]
  5. ASPIRIN [Concomitant]

REACTIONS (6)
  - ARTHROPATHY [None]
  - IMPAIRED HEALING [None]
  - NASOPHARYNGITIS [None]
  - SINUSITIS [None]
  - TOOTH DISORDER [None]
  - UPPER RESPIRATORY TRACT INFECTION [None]
